FAERS Safety Report 4804952-7 (Version None)
Quarter: 2005Q4

REPORT INFORMATION
  Report Type: 
  Country: None (occurrence: None)
  Receive Date: 20051017
  Receipt Date: 20031229
  Transmission Date: 20060501
  Serious: Yes (Death)
  Sender: FDA-Public Use
  Company Number: GBS040314599

PATIENT
  Age: 63 Year
  Sex: Female
  Weight: 98 kg

DRUGS (16)
  1. FORTEO [Suspect]
  2. ENALAPRIL MALEATE [Concomitant]
  3. ASPIRIN [Concomitant]
  4. DILTIAZEM [Concomitant]
  5. GLYCERYL TRINITRATE [Concomitant]
  6. SINEMET [Concomitant]
  7. SODIUM CHLORIDE [Concomitant]
  8. LACTULOSE [Concomitant]
  9. ACETAMINOPHEN [Concomitant]
  10. DOXAZOSIN MESYLATE [Concomitant]
  11. CALCIHEW D3 FORTE [Concomitant]
  12. ALENDRONIC ACID [Concomitant]
  13. GLICLAZIDE [Concomitant]
  14. TRAMADOL HYDROCHLORIDE [Concomitant]
  15. SENNA [Concomitant]
  16. FRUSEMIDE [Concomitant]

REACTIONS (1)
  - PHARMACEUTICAL PRODUCT COMPLAINT [None]
